APPROVED DRUG PRODUCT: MPI DMSA KIDNEY REAGENT
Active Ingredient: TECHNETIUM TC-99M SUCCIMER KIT
Strength: N/A **Federal Register determination that product was not discontinued or withdrawn for safety or effectiveness reasons**
Dosage Form/Route: INJECTABLE;INJECTION
Application: N017944 | Product #001
Applicant: GE HEALTHCARE
Approved: May 18, 1982 | RLD: Yes | RS: No | Type: DISCN